FAERS Safety Report 9390403 (Version 1)
Quarter: 2013Q3

REPORT INFORMATION
  Report Type: Spontaneous
  Country: US (occurrence: None)
  Receive Date: 20130701
  Receipt Date: 20130701
  Transmission Date: 20140515
  Serious: No
  Sender: FDA-Public Use
  Company Number: TPA2013A05979

PATIENT
  Age: 8 Year
  Sex: Male

DRUGS (1)
  1. PREVACID [Suspect]
     Dates: start: 20130617

REACTIONS (5)
  - Headache [None]
  - Pain [None]
  - Pain in jaw [None]
  - Toothache [None]
  - Eye pain [None]
